FAERS Safety Report 7997415-1 (Version None)
Quarter: 2011Q4

REPORT INFORMATION
  Report Type: 
  Country: None (occurrence: None)
  Receive Date: 20111221
  Receipt Date: 20111215
  Transmission Date: 20120403
  Serious: Yes (Death)
  Sender: FDA-Public Use
  Company Number: US-CELGENEUS-163-21880-11122148

PATIENT
  Sex: Male

DRUGS (13)
  1. DIGOXIN [Concomitant]
     Dosage: .125 MILLIGRAM
     Route: 048
  2. FLOMAX [Concomitant]
     Dosage: .4 MILLIGRAM
     Route: 048
  3. PRADAXA [Concomitant]
     Dosage: 150 MILLIGRAM
     Route: 048
  4. LISINOPRIL [Concomitant]
     Dosage: 30 MILLIGRAM
     Route: 048
  5. REVLIMID [Suspect]
     Indication: MYELODYSPLASTIC SYNDROME
     Dosage: 10 MILLIGRAM
     Route: 048
     Dates: start: 20110315
  6. FOLIC ACID [Concomitant]
     Route: 048
  7. METOPROLOL TARTRATE [Concomitant]
     Dosage: 25 MILLIGRAM
     Route: 048
  8. PROAIR HFA [Concomitant]
     Route: 055
  9. GLIMEPIRIDE [Concomitant]
     Dosage: 1 MILLIGRAM
     Route: 048
  10. PAROXETINE HCL [Concomitant]
     Dosage: 10 MILLIGRAM
     Route: 048
  11. NITROGLYCERIN [Concomitant]
     Dosage: .4 MILLIGRAM
     Route: 060
  12. SIMVASTATIN [Concomitant]
     Dosage: 80 MILLIGRAM
     Route: 048
  13. METFORMIN HCL [Concomitant]
     Dosage: 500 MILLIGRAM
     Route: 048

REACTIONS (1)
  - DEATH [None]
